FAERS Safety Report 5497565-8 (Version None)
Quarter: 2007Q4

REPORT INFORMATION
  Report Type: 
  Country: None (occurrence: None)
  Receive Date: 20071025
  Receipt Date: 20061208
  Transmission Date: 20080405
  Serious: No
  Sender: FDA-Public Use
  Company Number: A0630973A

PATIENT
  Age: 79 Year
  Sex: Female

DRUGS (5)
  1. ADVAIR DISKUS 100/50 [Suspect]
     Indication: CHRONIC OBSTRUCTIVE PULMONARY DISEASE
     Dosage: 1PUFF TWICE PER DAY
     Route: 055
  2. OSCAL [Suspect]
  3. DIOVAN [Concomitant]
  4. UNSPECIFIED MEDICATION [Concomitant]
  5. VITAMIN CAP [Concomitant]

REACTIONS (1)
  - BLOOD PRESSURE INCREASED [None]
